FAERS Safety Report 16913722 (Version 2)
Quarter: 2019Q4

REPORT INFORMATION
  Report Type: Spontaneous
  Country: HU (occurrence: HU)
  Receive Date: 20191014
  Receipt Date: 20191024
  Transmission Date: 20200122
  Serious: Yes (Death, Hospitalization, Other)
  Sender: FDA-Public Use
  Company Number: HU-PFIZER INC-2019435714

PATIENT
  Age: 80 Year
  Sex: Female

DRUGS (11)
  1. AMLODIPINE BESILATE [Suspect]
     Active Substance: AMLODIPINE BESYLATE
     Dosage: UNK
  2. NOACID [DIHYDROXYALUMINUM SODIUM CARBONATE] [Concomitant]
     Dosage: UNK
  3. BISOBLOCK [Concomitant]
     Active Substance: BISOPROLOL FUMARATE
     Dosage: UNK
  4. NITROMINT TTS-5 [Concomitant]
     Dosage: UNK
  5. DESFERAL [Suspect]
     Active Substance: DEFEROXAMINE MESYLATE
     Dosage: UNK
  6. FUROSEMIDE. [Concomitant]
     Active Substance: FUROSEMIDE
     Dosage: UNK
  7. ADEXOR MR [Concomitant]
     Dosage: UNK
  8. KALDYUM [Concomitant]
     Active Substance: POTASSIUM CHLORIDE
     Dosage: UNK
  9. ROXERA [Concomitant]
     Active Substance: ROSUVASTATIN CALCIUM
     Dosage: UNK
  10. ASPIRIN PROTECT [Concomitant]
     Active Substance: ASPIRIN
     Dosage: UNK
  11. L-THYROXIN [LEVOTHYROXINE SODIUM] [Concomitant]
     Active Substance: LEVOTHYROXINE SODIUM
     Dosage: UNK

REACTIONS (22)
  - Electrocardiogram ST segment depression [Fatal]
  - Aneurysm recanalisation [Fatal]
  - Mitral valve incompetence [Fatal]
  - Coronary artery occlusion [Fatal]
  - Hydrothorax [Fatal]
  - Cardiac failure [Fatal]
  - Troponin T increased [Fatal]
  - Mucosal discolouration [Fatal]
  - Pneumonia [Fatal]
  - Anaemia [Fatal]
  - Feeling abnormal [Fatal]
  - Respiratory failure [Fatal]
  - Cough [Fatal]
  - Acute myocardial infarction [Fatal]
  - Sinus arrhythmia [Fatal]
  - Dyspnoea [Fatal]
  - Chest pain [Fatal]
  - Skin discolouration [Fatal]
  - Generalised oedema [Fatal]
  - Peripheral swelling [Fatal]
  - Ejection fraction decreased [Fatal]
  - Pulmonary congestion [Fatal]

NARRATIVE: CASE EVENT DATE: 2019
